FAERS Safety Report 11858885 (Version 1)
Quarter: 2015Q4

REPORT INFORMATION
  Report Type: Spontaneous
  Country: PT (occurrence: PT)
  Receive Date: 20151222
  Receipt Date: 20151222
  Transmission Date: 20160305
  Serious: Yes (Other)
  Sender: FDA-Public Use
  Company Number: PT-ROCHE-1681255

PATIENT
  Age: 67 Year
  Sex: Female
  Weight: 67 kg

DRUGS (6)
  1. MESNA. [Concomitant]
     Active Substance: MESNA
  2. CYCLOPHOSPHAMIDE. [Concomitant]
     Active Substance: CYCLOPHOSPHAMIDE
  3. CLEMASTINA [Concomitant]
     Indication: ALLERGY PROPHYLAXIS
     Route: 042
     Dates: start: 20151210, end: 20151210
  4. MABTHERA [Suspect]
     Active Substance: RITUXIMAB
     Indication: NON-HODGKIN^S LYMPHOMA
     Route: 042
     Dates: start: 20151210, end: 20151210
  5. VINCRISTINE [Concomitant]
     Active Substance: VINCRISTINE
  6. RANITIDINE [Concomitant]
     Active Substance: RANITIDINE\RANITIDINE HYDROCHLORIDE
     Indication: PROPHYLAXIS AGAINST GASTROINTESTINAL ULCER
     Route: 042
     Dates: start: 20151210, end: 20151210

REACTIONS (4)
  - Oropharyngeal discomfort [Recovering/Resolving]
  - Dry mouth [Recovering/Resolving]
  - Eyelid oedema [Recovering/Resolving]
  - Nasal congestion [Recovering/Resolving]

NARRATIVE: CASE EVENT DATE: 20151210
